FAERS Safety Report 5754212-5 (Version None)
Quarter: 2008Q2

REPORT INFORMATION
  Report Type: 
  Country: None (occurrence: None)
  Receive Date: 20080530
  Receipt Date: 20080519
  Transmission Date: 20081010
  Serious: Yes (Other)
  Sender: FDA-Public Use
  Company Number: US-PFIZER INC-2008028093

PATIENT
  Sex: Male
  Weight: 79.4 kg

DRUGS (2)
  1. DILANTIN [Suspect]
     Indication: CONVULSION
  2. PHENYTOIN [Suspect]
     Indication: CONVULSION
     Dates: start: 20071101, end: 20080326

REACTIONS (15)
  - ANTICONVULSANT DRUG LEVEL DECREASED [None]
  - BLOOD IRON DECREASED [None]
  - CONSTIPATION [None]
  - CONVULSION [None]
  - DYSPHAGIA [None]
  - GASTROOESOPHAGEAL REFLUX DISEASE [None]
  - HEADACHE [None]
  - HYPOAESTHESIA [None]
  - LIP SWELLING [None]
  - MEMORY IMPAIRMENT [None]
  - OEDEMA MOUTH [None]
  - OESOPHAGEAL HAEMORRHAGE [None]
  - RESTLESSNESS [None]
  - SPEECH DISORDER [None]
  - SWELLING FACE [None]
